FAERS Safety Report 13965763 (Version 1)
Quarter: 2017Q3

REPORT INFORMATION
  Report Type: Spontaneous
  Country: US (occurrence: US)
  Receive Date: 20170913
  Receipt Date: 20170913
  Transmission Date: 20171128
  Serious: No
  Sender: FDA-Public Use
  Company Number: US-ACTELION-A-US2017-149657

PATIENT
  Age: 83 Year
  Sex: Female

DRUGS (18)
  1. NITROFURANTOIN. [Concomitant]
     Active Substance: NITROFURANTOIN
  2. MACROBID [Concomitant]
     Active Substance: NITROFURANTOIN\NITROFURANTOIN MONOHYDRATE
  3. WARFARIN [Concomitant]
     Active Substance: WARFARIN
  4. REMODULIN [Concomitant]
     Active Substance: TREPROSTINIL
  5. LEVOTHYROXINE. [Concomitant]
     Active Substance: LEVOTHYROXINE
  6. NYSTATIN. [Concomitant]
     Active Substance: NYSTATIN
  7. OFLOXACIN. [Concomitant]
     Active Substance: OFLOXACIN
  8. CARVEDILOL. [Concomitant]
     Active Substance: CARVEDILOL
  9. PAROXETINE. [Concomitant]
     Active Substance: PAROXETINE
  10. TYVASO [Concomitant]
     Active Substance: TREPROSTINIL
  11. PRAVASTATIN. [Concomitant]
     Active Substance: PRAVASTATIN
  12. ZETIA [Concomitant]
     Active Substance: EZETIMIBE
  13. TRACLEER [Suspect]
     Active Substance: BOSENTAN
     Indication: PULMONARY HYPERTENSION
     Dosage: 125 MG, UNK
     Route: 048
  14. PREDNISOLONE. [Concomitant]
     Active Substance: PREDNISOLONE
  15. TRAZODONE [Concomitant]
     Active Substance: TRAZODONE HYDROCHLORIDE
  16. FUROSEMIDE. [Concomitant]
     Active Substance: FUROSEMIDE
  17. LISINOPRIL. [Concomitant]
     Active Substance: LISINOPRIL
  18. ADCIRCA [Concomitant]
     Active Substance: TADALAFIL

REACTIONS (3)
  - Abdominal pain upper [Unknown]
  - Sinusitis [Recovered/Resolved]
  - Diarrhoea [Unknown]
